FAERS Safety Report 18818235 (Version 3)
Quarter: 2021Q3

REPORT INFORMATION
  Report Type: Spontaneous
  Country: DE (occurrence: DE)
  Receive Date: 20210201
  Receipt Date: 20210823
  Transmission Date: 20211014
  Serious: Yes (Hospitalization)
  Sender: FDA-Public Use
  Company Number: NVSC2021DE020666

PATIENT
  Age: 74 Year
  Sex: Male

DRUGS (9)
  1. BISOPROLOL [Concomitant]
     Active Substance: BISOPROLOL
     Indication: PRODUCT USED FOR UNKNOWN INDICATION
     Dosage: UNK
     Route: 048
  2. CABAZITAXEL [Suspect]
     Active Substance: CABAZITAXEL
     Indication: HORMONE-REFRACTORY PROSTATE CANCER
     Dosage: 16 MG/M2, QOW
     Route: 042
     Dates: start: 20201230, end: 20201230
  3. PREDNISONE. [Suspect]
     Active Substance: PREDNISONE
     Indication: HORMONE-REFRACTORY PROSTATE CANCER
     Dosage: UNK UNK, QD
     Route: 065
  4. CABAZITAXEL [Suspect]
     Active Substance: CABAZITAXEL
     Dosage: 16 MG/M2, QOW
     Route: 042
  5. LENOGRASTIM [Suspect]
     Active Substance: LENOGRASTIM
     Indication: HORMONE-REFRACTORY PROSTATE CANCER
     Dosage: UNK, INJECTED FROM DAY 3 TO DAY 7 (5 DAYS) AFTER EVERY ADMINISTRATION OF CABAZITAXEL
     Route: 065
  6. PREDNISONE. [Suspect]
     Active Substance: PREDNISONE
     Dosage: 10 MG, QD
     Route: 065
  7. LENOGRASTIM [Suspect]
     Active Substance: LENOGRASTIM
     Dosage: UNK, INJECTED FROM DAY 3 TO DAY 7 (5 DAYS) AFTER EVERY ADMINISTRATION OF CABAZITAXEL
     Route: 065
  8. EMSELEX [Concomitant]
     Active Substance: DARIFENACIN HYDROBROMIDE
     Indication: PRODUCT USED FOR UNKNOWN INDICATION
     Dosage: UNK
     Route: 048
     Dates: start: 20201230
  9. PRADAXA [Concomitant]
     Active Substance: DABIGATRAN ETEXILATE MESYLATE
     Indication: PRODUCT USED FOR UNKNOWN INDICATION
     Dosage: UNK
     Route: 048

REACTIONS (1)
  - Haematuria [Unknown]

NARRATIVE: CASE EVENT DATE: 20210108
